FAERS Safety Report 5471594-2 (Version None)
Quarter: 2007Q3

REPORT INFORMATION
  Report Type: 
  Country: None (occurrence: None)
  Receive Date: 20070928
  Receipt Date: 20070130
  Transmission Date: 20080115
  Serious: No
  Sender: FDA-Public Use
  Company Number: US-BRISTOL-MYERS SQUIBB COMPANY-13661665

PATIENT
  Age: 40 Year
  Sex: Female

DRUGS (1)
  1. DEFINITY [Suspect]
     Indication: ECHOCARDIOGRAM
     Dosage: INITIAL DOSE OF DEFINITY 4CC IV PUSH
     Route: 042
     Dates: start: 20070129

REACTIONS (3)
  - ANXIETY [None]
  - FLUSHING [None]
  - HEART RATE INCREASED [None]
